FAERS Safety Report 9100233 (Version 1)
Quarter: 2013Q1

REPORT INFORMATION
  Report Type: Spontaneous
  Country: GR (occurrence: GR)
  Receive Date: 20130215
  Receipt Date: 20130215
  Transmission Date: 20140127
  Serious: Yes (Other)
  Sender: FDA-Public Use
  Company Number: GR-ROCHE-1188510

PATIENT
  Age: 53 Year
  Sex: Female

DRUGS (1)
  1. MABTHERA [Suspect]
     Indication: B-CELL LYMPHOMA
     Route: 065

REACTIONS (4)
  - Acute myeloid leukaemia [Unknown]
  - Neutropenia [Unknown]
  - Pancytopenia [Unknown]
  - Myelodysplastic syndrome [Unknown]
